FAERS Safety Report 20355504 (Version 1)
Quarter: 2022Q1

REPORT INFORMATION
  Report Type: Spontaneous
  Country: US (occurrence: None)
  Receive Date: 20220119
  Receipt Date: 20220119
  Transmission Date: 20220423
  Serious: Yes (Other)
  Sender: FDA-Public Use
  Company Number: None

PATIENT
  Age: 55 Year
  Sex: Male

DRUGS (1)
  1. SOTROVIMAB [Suspect]
     Active Substance: SOTROVIMAB
     Dosage: OTHER FREQUENCY : ONCE;?
     Route: 040

REACTIONS (2)
  - Wrong product administered [None]
  - Product selection error [None]

NARRATIVE: CASE EVENT DATE: 20220112
